FAERS Safety Report 6639543-9 (Version None)
Quarter: 2010Q1

REPORT INFORMATION
  Report Type: 
  Country: None (occurrence: None)
  Receive Date: 20100318
  Receipt Date: 20100309
  Transmission Date: 20100710
  Serious: Yes (Hospitalization)
  Sender: FDA-Public Use
  Company Number: DE-JNJFOC-20100302561

PATIENT
  Age: 71 Year
  Sex: Male

DRUGS (4)
  1. TAVANIC [Suspect]
     Indication: CROHN'S DISEASE
     Route: 048
  2. MYCOBUTIN [Suspect]
     Indication: CROHN'S DISEASE
     Route: 048
  3. CLARITHROMYCIN [Suspect]
     Indication: CROHN'S DISEASE
     Route: 048
  4. MESALAZINE [Suspect]
     Indication: CROHN'S DISEASE
     Route: 048

REACTIONS (3)
  - JAUNDICE [None]
  - SUPRAVENTRICULAR TACHYCARDIA [None]
  - TRANSAMINASES INCREASED [None]
